FAERS Safety Report 8221278 (Version 6)
Quarter: 2013Q1

REPORT INFORMATION
  Report Type: Spontaneous
  Country: JP (occurrence: JP)
  Receive Date: 20111102
  Receipt Date: 20130116
  Transmission Date: 20140127
  Serious: Yes (Disabling, Other)
  Sender: FDA-Public Use
  Company Number: JP-PFIZER INC-2011260593

PATIENT
  Age: 77 Year
  Sex: Male
  Weight: 56 kg

DRUGS (7)
  1. XALATAN [Suspect]
     Indication: GLAUCOMA
     Dosage: 1X/DAY, IN RIGHT EYE
     Route: 047
     Dates: start: 2006, end: 20081223
  2. XALATAN [Suspect]
     Indication: INTRAOCULAR PRESSURE INCREASED
     Dosage: 4X/DAY OR MORE, IN RIGHT EYE
     Route: 047
     Dates: start: 20081225, end: 20090129
  3. DICLOD [Concomitant]
     Indication: PROPHYLAXIS
     Dosage: UNK
     Route: 047
     Dates: start: 200812
  4. DICLOD [Concomitant]
     Dosage: UNK
     Dates: start: 201002
  5. CRAVIT [Concomitant]
     Dosage: UNK
     Route: 047
     Dates: start: 200812
  6. CRAVIT [Concomitant]
     Dosage: UNK
     Dates: start: 201002
  7. RINDERON [Concomitant]
     Dosage: UNK
     Route: 047
     Dates: start: 200812

REACTIONS (2)
  - Corneal disorder [Not Recovered/Not Resolved]
  - Conjunctival hyperaemia [Not Recovered/Not Resolved]
